FAERS Safety Report 8450601-9 (Version None)
Quarter: 2012Q2

REPORT INFORMATION
  Report Type: 
  Country: None (occurrence: None)
  Receive Date: 20120620
  Receipt Date: 20120615
  Transmission Date: 20120825
  Serious: Yes (Other)
  Sender: FDA-Public Use
  Company Number: PHHY2012CA051510

PATIENT
  Sex: Male

DRUGS (2)
  1. DESFERAL [Suspect]
     Indication: MYELODYSPLASTIC SYNDROME
     Route: 042
  2. DESFERAL [Suspect]
     Indication: SICKLE CELL ANAEMIA

REACTIONS (5)
  - DEAFNESS [None]
  - VISUAL IMPAIRMENT [None]
  - ABDOMINAL PAIN [None]
  - HEARING IMPAIRED [None]
  - BLINDNESS [None]
